FAERS Safety Report 21837435 (Version 1)
Quarter: 2023Q1

REPORT INFORMATION
  Report Type: Spontaneous
  Country: US (occurrence: None)
  Receive Date: 20230106
  Receipt Date: 20230106
  Transmission Date: 20230418
  Serious: No
  Sender: FDA-Public Use
  Company Number: None

PATIENT
  Age: 73 Year
  Sex: Female
  Weight: 46.8 kg

DRUGS (10)
  1. ROBITUSSIN HONEY MAXIMUM STRENGTH NIGHTTIME COUGH DM [Suspect]
     Active Substance: DEXTROMETHORPHAN HYDROBROMIDE\DOXYLAMINE SUCCINATE
     Indication: Cough
     Dosage: OTHER QUANTITY : 1 20ML;?FREQUENCY : AT BEDTIME;?
     Route: 048
     Dates: start: 20221228, end: 20221228
  2. LOSARTAN POTASSIUM [Concomitant]
     Active Substance: LOSARTAN POTASSIUM
  3. Rossvastatin [Concomitant]
  4. PROLIA [Concomitant]
     Active Substance: DENOSUMAB
  5. YUVAFEM [Concomitant]
     Active Substance: ESTRADIOL HEMIHYDRATE
  6. VITAMIN D [Concomitant]
     Active Substance: VITAMIN D NOS
  7. HERBALS\TURMERIC [Concomitant]
     Active Substance: HERBALS\TURMERIC
  8. MAGNESIUM [Concomitant]
     Active Substance: MAGNESIUM
  9. PROBIOTICS NOS [Concomitant]
     Active Substance: PROBIOTICS NOS
  10. Multi-Vitamin for Women [Concomitant]

REACTIONS (8)
  - Hyperhidrosis [None]
  - Staring [None]
  - Pallor [None]
  - Syncope [None]
  - Tooth fracture [None]
  - Fall [None]
  - Head injury [None]
  - Eye contusion [None]

NARRATIVE: CASE EVENT DATE: 20221228
